FAERS Safety Report 7985921-5 (Version None)
Quarter: 2011Q4

REPORT INFORMATION
  Report Type: 
  Country: None (occurrence: None)
  Receive Date: 20111216
  Receipt Date: 20111213
  Transmission Date: 20120403
  Serious: Yes (Hospitalization)
  Sender: FDA-Public Use
  Company Number: FR-PFIZER INC-2011302796

PATIENT
  Age: 74 Year
  Sex: Female

DRUGS (9)
  1. OXYCONTIN [Suspect]
     Indication: SCIATICA
     Dosage: UNK
     Dates: start: 20111013
  2. VFEND [Concomitant]
  3. NEXIUM [Concomitant]
  4. PIPERACILLIN AND TAZOBACTAM [Suspect]
     Indication: PYELOCALIECTASIS
     Dosage: UNK
     Route: 042
     Dates: start: 20111013, end: 20111016
  5. ROCEPHIN [Suspect]
     Dosage: UNK
     Dates: start: 20111016, end: 20111026
  6. POTASSIUM CHLORIDE [Concomitant]
  7. XANAX [Concomitant]
  8. ROCEPHIN [Suspect]
     Indication: URINARY TRACT INFECTION
     Dosage: UNK
     Dates: start: 20110911
  9. AMIKACIN [Concomitant]
     Indication: URINARY TRACT INFECTION
     Dosage: UNK
     Dates: start: 20110911

REACTIONS (3)
  - BURNING SENSATION [None]
  - PRURITUS [None]
  - ERYTHEMA [None]
